FAERS Safety Report 4316664-7 (Version None)
Quarter: 2004Q1

REPORT INFORMATION
  Report Type: 
  Country: None (occurrence: None)
  Receive Date: 20040311
  Receipt Date: 20040301
  Transmission Date: 20041129
  Serious: Yes (Congenital Anomaly)
  Sender: FDA-Public Use
  Company Number: 2004009814

PATIENT
  Sex: Female

DRUGS (2)
  1. ZITHROMAX [Suspect]
     Indication: STREPTOCOCCAL INFECTION
     Dates: start: 20011201, end: 20011201
  2. METHOTREXATE [Suspect]
     Indication: ILL-DEFINED DISORDER

REACTIONS (10)
  - ABASIA [None]
  - ABDOMINAL PAIN [None]
  - COMPLICATIONS OF MATERNAL EXPOSURE TO THERAPEUTIC DRUGS [None]
  - DRUG EXPOSURE DURING PREGNANCY [None]
  - DYSSTASIA [None]
  - HYPERMOBILITY SYNDROME [None]
  - HYPOTONIA [None]
  - LIGAMENT LAXITY [None]
  - PREGNANCY [None]
  - TERATOGENICITY [None]
